FAERS Safety Report 8517967-2 (Version None)
Quarter: 2012Q3

REPORT INFORMATION
  Report Type: 
  Country: None (occurrence: None)
  Receive Date: 20120718
  Receipt Date: 20120710
  Transmission Date: 20120928
  Serious: Yes (Hospitalization, Other)
  Sender: FDA-Public Use
  Company Number: JP-ASTELLAS-2012JP002150

PATIENT
  Sex: Male
  Weight: 172 kg

DRUGS (5)
  1. ANTI-THYMOCYTE GLOBULIN NOS [Concomitant]
     Indication: BONE MARROW CONDITIONING REGIMEN
     Route: 065
  2. PROGRAF [Suspect]
     Indication: PROPHYLAXIS AGAINST GRAFT VERSUS HOST DISEASE
     Dosage: UNK
     Route: 041
     Dates: start: 20110124
  3. FLUDARABINE PHOSPHATE [Concomitant]
     Indication: BONE MARROW CONDITIONING REGIMEN
     Route: 065
  4. METHOTREXATE [Concomitant]
     Indication: PROPHYLAXIS AGAINST GRAFT VERSUS HOST DISEASE
     Route: 065
  5. MELPHALAN HYDROCHLORIDE [Concomitant]
     Indication: BONE MARROW CONDITIONING REGIMEN
     Route: 065

REACTIONS (4)
  - DRUG INEFFECTIVE [None]
  - CHRONIC GRAFT VERSUS HOST DISEASE [None]
  - APLASIA PURE RED CELL [None]
  - ERYTHEMA INFECTIOSUM [None]
